FAERS Safety Report 6215580-3 (Version None)
Quarter: 2009Q2

REPORT INFORMATION
  Report Type: 
  Country: None (occurrence: None)
  Receive Date: 20090605
  Receipt Date: 20090527
  Transmission Date: 20091009
  Serious: Yes (Disabling)
  Sender: FDA-Public Use
  Company Number: JP-BAXTER-2009BH008960

PATIENT
  Age: 56 Year
  Sex: Male
  Weight: 70 kg

DRUGS (3)
  1. FEIBA VH IMMUNO [Suspect]
     Indication: HAEMATURIA
     Route: 042
     Dates: start: 20090519, end: 20090519
  2. NOVOSEVEN [Suspect]
     Indication: HAEMATURIA
     Route: 042
     Dates: start: 20090519, end: 20090519
  3. ANTIHEMOPHILIC FACTOR (HUMAN) [Suspect]
     Indication: HAEMATURIA
     Route: 065
     Dates: start: 20090519, end: 20090519

REACTIONS (7)
  - AMNESIA [None]
  - DISSEMINATED INTRAVASCULAR COAGULATION [None]
  - HYPOAESTHESIA [None]
  - PAIN [None]
  - RENAL IMPAIRMENT [None]
  - RESTLESSNESS [None]
  - VOMITING [None]
